FAERS Safety Report 25635974 (Version 2)
Quarter: 2025Q3

REPORT INFORMATION
  Report Type: Spontaneous
  Country: US (occurrence: US)
  Receive Date: 20250803
  Receipt Date: 20250921
  Transmission Date: 20251020
  Serious: No
  Sender: ROCHE
  Company Number: US-ROCHE-10000352742

PATIENT
  Sex: Female

DRUGS (2)
  1. ACTEMRA [Suspect]
     Active Substance: TOCILIZUMAB
     Indication: Morphoea
     Dosage: FORM STRENGTH 162 MG/0.9 ML
     Route: 058
     Dates: start: 202506
  2. ACTEMRA [Suspect]
     Active Substance: TOCILIZUMAB
     Indication: Rheumatoid arthritis
     Dosage: FORM STRENGTH 162 MG/0.9 ML
     Route: 058
     Dates: start: 202506

REACTIONS (2)
  - No adverse event [Unknown]
  - Off label use [Unknown]
